FAERS Safety Report 7953311-7 (Version None)
Quarter: 2011Q4

REPORT INFORMATION
  Report Type: 
  Country: None (occurrence: None)
  Receive Date: 20111202
  Receipt Date: 20111123
  Transmission Date: 20120403
  Serious: Yes (Other)
  Sender: FDA-Public Use
  Company Number: US-BRISTOL-MYERS SQUIBB COMPANY-16251803

PATIENT
  Age: 49 Year
  Sex: Male

DRUGS (1)
  1. YERVOY [Suspect]
     Dosage: RECEIVED 3 DOSES.
     Dates: end: 20110728

REACTIONS (3)
  - AUTOIMMUNE HEPATITIS [None]
  - THROMBOCYTOPENIA [None]
  - SPLENOMEGALY [None]
